FAERS Safety Report 9720553 (Version 2)
Quarter: 2014Q1

REPORT INFORMATION
  Report Type: Spontaneous
  Country: GB (occurrence: GB)
  Receive Date: 20131129
  Receipt Date: 20140205
  Transmission Date: 20141002
  Serious: Yes (Other)
  Sender: FDA-Public Use
  Company Number: GB-DRREDDYS-GER/UKI/13/0035881

PATIENT
  Age: 28 Year
  Sex: Female

DRUGS (8)
  1. LAMOTRIGINE [Suspect]
     Indication: PRODUCT USED FOR UNKNOWN INDICATION
     Dates: start: 2012
  2. LAMOTRIGINE [Suspect]
  3. EPILIM CHRONO [Suspect]
     Indication: BIPOLAR DISORDER
     Route: 048
     Dates: start: 20131105, end: 20131111
  4. EPILIM CHRONO [Suspect]
     Route: 048
     Dates: start: 20131112, end: 20131118
  5. PRIADEL [Concomitant]
     Indication: BIPOLAR DISORDER
     Route: 048
     Dates: start: 201311
  6. PRIADEL [Concomitant]
     Route: 048
     Dates: end: 201311
  7. ZOLPIDEM [Concomitant]
     Indication: SLEEP DISORDER
     Route: 048
     Dates: start: 2013
  8. ZOLPIDEM [Concomitant]
     Route: 048

REACTIONS (5)
  - Blindness transient [Recovered/Resolved]
  - Visual impairment [Recovered/Resolved]
  - Diplopia [Recovered/Resolved]
  - Nausea [Unknown]
  - Off label use [Unknown]
